FAERS Safety Report 18250896 (Version 3)
Quarter: 2021Q1

REPORT INFORMATION
  Report Type: Spontaneous
  Country: US (occurrence: US)
  Receive Date: 20200909
  Receipt Date: 20210111
  Transmission Date: 20210419
  Serious: Yes (Hospitalization)
  Sender: FDA-Public Use
  Company Number: US-VIFOR (INTERNATIONAL) INC.-VIT-2020-08767

PATIENT
  Age: 80 Year
  Sex: Female
  Weight: 86.71 kg

DRUGS (16)
  1. VELTASSA [Suspect]
     Active Substance: PATIROMER
     Indication: URETERAL DISORDER
     Route: 048
     Dates: start: 20170207
  2. VELTASSA [Suspect]
     Active Substance: PATIROMER
     Indication: HYPERKALAEMIA
     Route: 048
     Dates: start: 201803
  3. ASPIRIN. [Concomitant]
     Active Substance: ASPIRIN
  4. JANUMET [Concomitant]
     Active Substance: METFORMIN HYDROCHLORIDE\SITAGLIPTIN PHOSPHATE
  5. FENOFIBRATE. [Concomitant]
     Active Substance: FENOFIBRATE
  6. MAGNESIUM [Concomitant]
     Active Substance: MAGNESIUM
  7. ASPIRIN. [Concomitant]
     Active Substance: ASPIRIN
  8. B12/B12 FAST [Concomitant]
  9. MAGNOX [Concomitant]
  10. SENOKOT [Concomitant]
     Active Substance: SENNOSIDES
  11. VELTASSA [Suspect]
     Active Substance: PATIROMER
     Indication: RENAL DISORDER
     Route: 048
     Dates: start: 201801
  12. VELTASSA [Suspect]
     Active Substance: PATIROMER
     Dosage: CONTENTS OF PACKET
     Route: 048
     Dates: start: 20170204
  13. FLUDROCORT [Concomitant]
  14. VITAMIN D3 [Concomitant]
     Active Substance: CHOLECALCIFEROL
  15. FEROSUL [Concomitant]
     Active Substance: FERROUS SULFATE
  16. FISH OIL [Concomitant]
     Active Substance: FISH OIL

REACTIONS (2)
  - Hernia [Not Recovered/Not Resolved]
  - Blood potassium decreased [Not Recovered/Not Resolved]

NARRATIVE: CASE EVENT DATE: 202012
